FAERS Safety Report 16112881 (Version 2)
Quarter: 2019Q1

REPORT INFORMATION
  Report Type: Report from Study
  Country: US (occurrence: US)
  Receive Date: 20190325
  Receipt Date: 20190328
  Transmission Date: 20190418
  Serious: Yes (Other)
  Sender: FDA-Public Use
  Company Number: US-JNJFOC-20190323053

PATIENT
  Age: 63 Year
  Sex: Female

DRUGS (8)
  1. DOXYCYCLINE. [Concomitant]
     Active Substance: DOXYCYCLINE
     Dosage: 100 MG, BID, FOR SEVEN DAYS
  2. IMBRUVICA [Suspect]
     Active Substance: IBRUTINIB
     Indication: CHRONIC LYMPHOCYTIC LEUKAEMIA
     Route: 048
     Dates: start: 20180321, end: 20180529
  3. IMBRUVICA [Suspect]
     Active Substance: IBRUTINIB
     Indication: CHRONIC LYMPHOCYTIC LEUKAEMIA
     Route: 048
     Dates: start: 20180510
  4. IMBRUVICA [Suspect]
     Active Substance: IBRUTINIB
     Indication: CHRONIC LYMPHOCYTIC LEUKAEMIA
     Route: 048
     Dates: start: 20180530
  5. FORTEO [Concomitant]
     Active Substance: TERIPARATIDE
     Dosage: 20 MCG, QD, FOR TWO YEARS
  6. IMBRUVICA [Suspect]
     Active Substance: IBRUTINIB
     Indication: CHRONIC LYMPHOCYTIC LEUKAEMIA
     Route: 048
     Dates: start: 20180306
  7. BENZONATATE. [Concomitant]
     Active Substance: BENZONATATE
     Dosage: 100 MG, 1 PILL 3 TIMES A DAY FOR 3 WEEKS
  8. AMLODIPINE [Concomitant]
     Active Substance: AMLODIPINE BESYLATE

REACTIONS (6)
  - Cardiac murmur [Unknown]
  - Systemic lupus erythematosus [Unknown]
  - Osteoporosis [Unknown]
  - Hypertension [Not Recovered/Not Resolved]
  - Laryngitis [Recovering/Resolving]
  - Upper respiratory tract infection [Unknown]

NARRATIVE: CASE EVENT DATE: 201803
